FAERS Safety Report 5135664-0 (Version None)
Quarter: 2006Q4

REPORT INFORMATION
  Report Type: 
  Country: None (occurrence: None)
  Receive Date: 20061020
  Receipt Date: 20061010
  Transmission Date: 20070319
  Serious: Yes (Other)
  Sender: FDA-Public Use
  Company Number: 2006125932

PATIENT
  Age: 34 Year
  Sex: Male
  Weight: 119.296 kg

DRUGS (8)
  1. EXUBERA [Suspect]
     Indication: DIABETES MELLITUS NON-INSULIN-DEPENDENT
     Dosage: 15 MG (5 MG,3 IN 1 D), INHALATION
     Route: 055
     Dates: start: 20060101
  2. EXUBERA [Suspect]
  3. METFORMIN HCL [Concomitant]
  4. ACTOS [Concomitant]
  5. GLYBURIDE [Concomitant]
  6. LOTREL [Concomitant]
  7. STRATTERA [Concomitant]
  8. ZOLOFT [Concomitant]

REACTIONS (1)
  - BLOOD GLUCOSE INCREASED [None]
